FAERS Safety Report 19062451 (Version 1)
Quarter: 2021Q1

REPORT INFORMATION
  Report Type: Spontaneous
  Country: US (occurrence: US)
  Receive Date: 20210326
  Receipt Date: 20210326
  Transmission Date: 20210420
  Serious: Yes (Hospitalization)
  Sender: FDA-Public Use
  Company Number: US-STANDARD HOMEOPATHIC COMPANY-2108478

PATIENT
  Sex: Female

DRUGS (2)
  1. 4 KIDS COLD AND MUCUS NIGHTTIME [Suspect]
     Active Substance: ARABICA COFFEE BEAN\BRYONIA ALBA ROOT\CALCIUM SULFIDE\EUPHRASIA STRICTA\GOLDENSEAL\MATRICARIA RECUTITA\ONION\PHOSPHORUS\PULSATILLA VULGARIS\RUMEX CRISPUS ROOT\SILICON DIOXIDE\SODIUM CHLORIDE\SULFUR
     Route: 048
     Dates: start: 20210309, end: 20210309
  2. 4 KIDS COMPLETE COLD AND MUCUS [Suspect]
     Active Substance: HOMEOPATHICS
     Indication: NASOPHARYNGITIS
     Route: 048
     Dates: start: 20210309, end: 20210309

REACTIONS (1)
  - Hallucination [Unknown]

NARRATIVE: CASE EVENT DATE: 20210309
